FAERS Safety Report 18016489 (Version 1)
Quarter: 2020Q3

REPORT INFORMATION
  Report Type: Spontaneous
  Country: FR (occurrence: FR)
  Receive Date: 20200714
  Receipt Date: 20200714
  Transmission Date: 20201103
  Serious: Yes (Death, Other)
  Sender: FDA-Public Use
  Company Number: FR-ROCHE-2639363

PATIENT
  Age: 85 Year
  Sex: Female
  Weight: 85 kg

DRUGS (2)
  1. HYPNOVEL [Suspect]
     Active Substance: MIDAZOLAM
     Indication: PRODUCT USED FOR UNKNOWN INDICATION
     Route: 065
     Dates: start: 20200525, end: 20200606
  2. VALIUM [Suspect]
     Active Substance: DIAZEPAM
     Indication: SEDATIVE THERAPY
     Dosage: 10 MG/2 ML, SOLUTION INJECTABLE
     Route: 042
     Dates: start: 20200525, end: 20200606

REACTIONS (4)
  - Therapeutic reaction time decreased [Unknown]
  - Product availability issue [Unknown]
  - Sedation complication [Not Recovered/Not Resolved]
  - CYP2C19 polymorphism [Not Recovered/Not Resolved]

NARRATIVE: CASE EVENT DATE: 20200525
